FAERS Safety Report 5942530-7 (Version None)
Quarter: 2008Q4

REPORT INFORMATION
  Report Type: 
  Country: None (occurrence: None)
  Receive Date: 20081105
  Receipt Date: 20081026
  Transmission Date: 20090506
  Serious: Yes (Other)
  Sender: FDA-Public Use
  Company Number: US-PFIZER INC-2008090771

PATIENT
  Sex: Male
  Weight: 102.1 kg

DRUGS (7)
  1. LIPITOR [Suspect]
     Indication: BLOOD CHOLESTEROL INCREASED
     Dates: end: 20080101
  2. CELEBREX [Suspect]
     Indication: ARTHRITIS
  3. LISINOPRIL [Suspect]
     Dates: end: 20080101
  4. IBUPROFEN TABLETS [Suspect]
  5. GLUCOPHAGE [Suspect]
     Indication: DIABETES MELLITUS
  6. GLYBURIDE [Concomitant]
  7. HYDROCODONE [Concomitant]

REACTIONS (25)
  - ADVERSE DRUG REACTION [None]
  - ANXIETY [None]
  - BACK PAIN [None]
  - CHEST PAIN [None]
  - COUGH [None]
  - DIABETES MELLITUS [None]
  - FATIGUE [None]
  - FEELING ABNORMAL [None]
  - HYPERTENSION [None]
  - HYPERVENTILATION [None]
  - ILL-DEFINED DISORDER [None]
  - IRRITABILITY [None]
  - MALAISE [None]
  - MUSCULAR WEAKNESS [None]
  - MYALGIA [None]
  - MYOCARDIAL INFARCTION [None]
  - PAIN [None]
  - PAIN IN EXTREMITY [None]
  - POLLAKIURIA [None]
  - RESPIRATORY DISORDER [None]
  - ROTATOR CUFF SYNDROME [None]
  - TENSION [None]
  - TINNITUS [None]
  - URINARY TRACT INFECTION [None]
  - WEIGHT DECREASED [None]
